FAERS Safety Report 5750155-1 (Version None)
Quarter: 2008Q2

REPORT INFORMATION
  Report Type: 
  Country: None (occurrence: None)
  Receive Date: 20080527
  Receipt Date: 20080516
  Transmission Date: 20081010
  Serious: Yes (Other)
  Sender: FDA-Public Use
  Company Number: US-PFIZER INC-2008040895

PATIENT
  Sex: Female

DRUGS (2)
  1. GEODON [Suspect]
  2. DEPAKOTE [Suspect]

REACTIONS (8)
  - ALOPECIA [None]
  - BIPOLAR DISORDER [None]
  - DEPRESSION [None]
  - MUSCULOSKELETAL STIFFNESS [None]
  - NERVOUSNESS [None]
  - SOMNOLENCE [None]
  - SPEECH DISORDER [None]
  - TREMOR [None]
